FAERS Safety Report 8249531 (Version 7)
Quarter: 2018Q3

REPORT INFORMATION
  Report Type: Report from Study
  Country: JP (occurrence: JP)
  Receive Date: 20111117
  Receipt Date: 20180918
  Transmission Date: 20181010
  Serious: Yes (Death, Hospitalization, Other)
  Sender: FDA-Public Use
  Company Number: PHHY2010JP58113

PATIENT
  Age: 72 Year
  Sex: Male
  Weight: 60 kg

DRUGS (17)
  1. GASTER [Concomitant]
     Active Substance: FAMOTIDINE
     Indication: PROPHYLAXIS
     Dosage: 40 MG, OT
     Route: 048
     Dates: start: 200707, end: 20110211
  2. ZYLORIC [Concomitant]
     Active Substance: ALLOPURINOL
     Indication: PROPHYLAXIS
     Dosage: 100 MG, OT
     Route: 048
     Dates: start: 200707, end: 20110627
  3. GASTER [Concomitant]
     Active Substance: FAMOTIDINE
     Indication: PROPHYLAXIS
     Dosage: 40 MG, OT
     Route: 048
     Dates: start: 20110212, end: 20110627
  4. LEVEMIR [Concomitant]
     Active Substance: INSULIN DETEMIR
     Dosage: 8 IU, UNK
     Route: 065
  5. LASIX [Concomitant]
     Active Substance: FUROSEMIDE
     Indication: PRODUCT USED FOR UNKNOWN INDICATION
     Dosage: 80 MG, OT
     Route: 048
     Dates: start: 200707, end: 20100412
  6. NOVORAPID [Concomitant]
     Active Substance: INSULIN ASPART
     Indication: TYPE 1 DIABETES MELLITUS
     Dosage: 15 IU, OT
     Route: 065
     Dates: start: 20100812, end: 20110628
  7. BIOFERMIN [Concomitant]
     Active Substance: BACILLUS SUBTILIS\LACTOBACILLUS ACIDOPHILUS\STREPTOCOCCUS FAECAIS
     Indication: PROPHYLAXIS
     Dosage: 2 DF, OT
     Route: 048
     Dates: start: 200707
  8. BIOFERMIN [Concomitant]
     Active Substance: BACILLUS SUBTILIS\LACTOBACILLUS ACIDOPHILUS\STREPTOCOCCUS FAECAIS
     Dosage: 3 DF, OT
     Route: 048
  9. LEVEMIR [Concomitant]
     Active Substance: INSULIN DETEMIR
     Indication: TYPE 1 DIABETES MELLITUS
     Dosage: 12 IU, OT
     Route: 065
     Dates: start: 20100812
  10. NORVASC [Concomitant]
     Active Substance: AMLODIPINE BESYLATE
     Indication: HYPERTENSION
     Dosage: 2.5 MG, OT
     Route: 048
     Dates: start: 20110727, end: 20121102
  11. AMARYL [Concomitant]
     Active Substance: GLIMEPIRIDE
     Indication: TYPE 1 DIABETES MELLITUS
     Dosage: 2 MG, OT
     Route: 048
     Dates: end: 20100315
  12. ALDACTONE?A [Concomitant]
     Active Substance: SPIRONOLACTONE
     Indication: PRODUCT USED FOR UNKNOWN INDICATION
     Dosage: 25 MG, OT
     Route: 048
     Dates: start: 200707, end: 20100412
  13. TASIGNA [Suspect]
     Active Substance: NILOTINIB
     Indication: CHRONIC MYELOID LEUKAEMIA
     Dosage: 800 MG, QD
     Route: 048
     Dates: start: 20100217
  14. INSULIN DETEMIR [Concomitant]
     Active Substance: INSULIN DETEMIR
     Indication: TYPE 1 DIABETES MELLITUS
     Dosage: UNK
     Route: 058
     Dates: start: 20070318
  15. TASIGNA [Suspect]
     Active Substance: NILOTINIB
     Dosage: 400 MG, BID
     Route: 048
     Dates: end: 20121102
  16. BIOFERMIN [Concomitant]
     Active Substance: BACILLUS SUBTILIS\LACTOBACILLUS ACIDOPHILUS\STREPTOCOCCUS FAECAIS
     Dosage: 2 DF, OT
     Route: 048
     Dates: end: 20110627
  17. LEVEMIR [Concomitant]
     Active Substance: INSULIN DETEMIR
     Dosage: 6 IU, UNK
     Route: 065
     Dates: end: 201206

REACTIONS (16)
  - Anaemia [Not Recovered/Not Resolved]
  - Cerebral infarction [Recovered/Resolved with Sequelae]
  - Dehydration [Recovered/Resolved]
  - Diabetic nephropathy [Fatal]
  - Diabetes mellitus inadequate control [Recovered/Resolved]
  - Blood glucose increased [Recovered/Resolved]
  - Cerebral infarction [Recovered/Resolved with Sequelae]
  - Myalgia [Unknown]
  - Rhabdomyolysis [Recovered/Resolved]
  - Condition aggravated [Recovered/Resolved with Sequelae]
  - Cerebral infarction [Recovering/Resolving]
  - Lipase increased [Recovering/Resolving]
  - Haemoglobin decreased [Recovering/Resolving]
  - Pleural effusion [Recovered/Resolved]
  - Hemiplegia [Unknown]
  - Blood alkaline phosphatase increased [Not Recovered/Not Resolved]

NARRATIVE: CASE EVENT DATE: 20100223
